FAERS Safety Report 18998537 (Version 1)
Quarter: 2021Q1

REPORT INFORMATION
  Report Type: Spontaneous
  Country: US (occurrence: US)
  Receive Date: 20210311
  Receipt Date: 20210311
  Transmission Date: 20210420
  Serious: Yes (Hospitalization, Disabling, Other)
  Sender: FDA-Public Use
  Company Number: US-AMGEN-USA-2016076309

PATIENT
  Age: 42 Year
  Sex: Female

DRUGS (1)
  1. OTEZLA [Suspect]
     Active Substance: APREMILAST
     Indication: PSORIASIS
     Dosage: UNK
     Route: 048

REACTIONS (6)
  - Lymphoedema [Unknown]
  - Atrial fibrillation [Unknown]
  - Cellulitis [Unknown]
  - Renal failure [Unknown]
  - Septic shock [Unknown]
  - Illness [Unknown]
